FAERS Safety Report 15764971 (Version 1)
Quarter: 2018Q4

REPORT INFORMATION
  Report Type: Report from Study
  Country: US (occurrence: US)
  Receive Date: 20181227
  Receipt Date: 20181227
  Transmission Date: 20190205
  Serious: Yes (Hospitalization, Other)
  Sender: FDA-Public Use
  Company Number: US-SAKK-2018SA344183AA

PATIENT
  Age: 59 Year
  Sex: Female

DRUGS (4)
  1. AMLODIPINE [Concomitant]
     Active Substance: AMLODIPINE BESYLATE
     Indication: BLOOD PRESSURE MEASUREMENT
     Dosage: UNK
  2. INSULIN GLARGINE [Suspect]
     Active Substance: INSULIN GLARGINE
     Indication: DIABETES MELLITUS
     Dosage: 35 U THE MORNING AND AT NIGHT, BID
     Route: 058
  3. INSULIN GLARGINE [Suspect]
     Active Substance: INSULIN GLARGINE
     Dosage: 25 U IN THE MORNING AND AT NIGHT, BID
     Route: 058
     Dates: start: 20181212
  4. MORPHINE [Concomitant]
     Active Substance: MORPHINE

REACTIONS (9)
  - Nausea [Recovered/Resolved]
  - Vomiting [Recovered/Resolved]
  - Cholelithiasis [Recovered/Resolved]
  - Diabetes mellitus inadequate control [Recovered/Resolved]
  - Off label use [Unknown]
  - Blood glucose increased [Recovered/Resolved]
  - Pain [Recovered/Resolved]
  - Vomiting [Recovered/Resolved]
  - Impaired gastric emptying [Recovered/Resolved]

NARRATIVE: CASE EVENT DATE: 201801
